FAERS Safety Report 21906169 (Version 1)
Quarter: 2023Q1

REPORT INFORMATION
  Report Type: Spontaneous
  Country: GR (occurrence: GR)
  Receive Date: 20230124
  Receipt Date: 20230124
  Transmission Date: 20230417
  Serious: Yes (Hospitalization)
  Sender: FDA-Public Use
  Company Number: GR-CELLTRION INC.-2023GR001389

PATIENT

DRUGS (3)
  1. INFLIXIMAB [Suspect]
     Active Substance: INFLIXIMAB
     Indication: Colitis ulcerative
     Dosage: 5X100MG / INDUCTION SCHEME
     Dates: start: 20221205
  2. INFLIXIMAB [Suspect]
     Active Substance: INFLIXIMAB
     Dosage: 5X100MG / INDUCTION SCHEME
     Dates: start: 20221222
  3. INFLIXIMAB [Suspect]
     Active Substance: INFLIXIMAB
     Dosage: 5X100MG / INDUCTION SCHEME
     Dates: start: 20221222

REACTIONS (2)
  - Bacterial infection [Unknown]
  - Intentional dose omission [Unknown]
